FAERS Safety Report 7173214-8 (Version None)
Quarter: 2010Q4

REPORT INFORMATION
  Report Type: 
  Country: None (occurrence: None)
  Receive Date: 20101203
  Receipt Date: 20101122
  Transmission Date: 20110411
  Serious: Yes (Hospitalization, Other)
  Sender: FDA-Public Use
  Company Number: 2010-01060

PATIENT
  Age: 53 Year
  Sex: Male

DRUGS (5)
  1. LISINOPRIL [Suspect]
     Indication: PRODUCT USED FOR UNKNOWN INDICATION
     Dates: start: 20090101
  2. SAXAGLIPTIN (ONGLYZA) (UNKNOWN) [Suspect]
     Indication: PRODUCT USED FOR UNKNOWN INDICATION
     Dosage: ORAL
     Route: 048
     Dates: start: 20100519
  3. ATORVASTATIN CALCIUM [Concomitant]
  4. TADALAFIL (CIALIS) [Concomitant]
  5. METFORMIN [Concomitant]

REACTIONS (2)
  - ANAPHYLACTIC SHOCK [None]
  - URTICARIA [None]
